FAERS Safety Report 21568949 (Version 3)
Quarter: 2025Q3

REPORT INFORMATION
  Report Type: Report from Study
  Country: US (occurrence: US)
  Receive Date: 20221108
  Receipt Date: 20250918
  Transmission Date: 20251021
  Serious: Yes (Hospitalization, Other)
  Sender: ABBVIE
  Company Number: US-ABBVIE-4190760

PATIENT
  Age: 71 Year
  Sex: Male

DRUGS (2)
  1. IMBRUVICA [Suspect]
     Active Substance: IBRUTINIB
     Indication: Chronic lymphocytic leukaemia
     Dosage: TAKING THREE 140 MG CAPSULE ONCE DAILY
     Route: 048
     Dates: start: 20200814
  2. IMBRUVICA [Suspect]
     Active Substance: IBRUTINIB
     Indication: Chronic lymphocytic leukaemia
     Dosage: TAKING THREE 140 MG CAPSULE ONCE DAILY
     Route: 048
     Dates: start: 202209

REACTIONS (2)
  - Spinal operation [Unknown]
  - Ankle fracture [Unknown]

NARRATIVE: CASE EVENT DATE: 20221101
